FAERS Safety Report 4289648-5 (Version None)
Quarter: 2004Q1

REPORT INFORMATION
  Report Type: 
  Country: None (occurrence: None)
  Receive Date: 20040126
  Receipt Date: 20031118
  Transmission Date: 20041129
  Serious: Yes (Congenital Anomaly)
  Sender: FDA-Public Use
  Company Number: USA031152770

PATIENT

DRUGS (2)
  1. STRATTERA [Suspect]
  2. SERTRALINE HCL [Concomitant]

REACTIONS (1)
  - LIMB MALFORMATION [None]
